FAERS Safety Report 11458181 (Version 4)
Quarter: 2016Q1

REPORT INFORMATION
  Report Type: Spontaneous
  Country: US (occurrence: None)
  Receive Date: 20150904
  Receipt Date: 20160122
  Transmission Date: 20160525
  Serious: Yes (Hospitalization, Other)
  Sender: FDA-Public Use
  Company Number: US-MDT-ADR-2015-01704

PATIENT
  Age: 23 Year
  Sex: Male

DRUGS (1)
  1. LIORESAL [Suspect]
     Active Substance: BACLOFEN
     Indication: MUSCLE SPASTICITY
     Dosage: 50 MCG/DAY

REACTIONS (17)
  - Staphylococcal infection [None]
  - Vomiting [None]
  - Hyperhidrosis [None]
  - Muscle contracture [None]
  - Medical device site erythema [None]
  - Heart rate increased [None]
  - Autonomic nervous system imbalance [None]
  - Medical device site infection [None]
  - Pyrexia [None]
  - Abnormal dreams [None]
  - Abdominal tenderness [None]
  - Anxiety [None]
  - Medical device site pain [None]
  - Infection [None]
  - Abdominal pain [None]
  - Implant site haemorrhage [None]
  - Pain in extremity [None]
